FAERS Safety Report 26072184 (Version 1)
Quarter: 2025Q4

REPORT INFORMATION
  Report Type: Spontaneous
  Country: EU (occurrence: EU)
  Receive Date: 20251120
  Receipt Date: 20251120
  Transmission Date: 20260118
  Serious: Yes (Hospitalization)
  Sender: MYLAN
  Company Number: None

PATIENT
  Age: 86 Year
  Sex: Female

DRUGS (32)
  1. PACLITAXEL [Suspect]
     Active Substance: PACLITAXEL
     Indication: Breast cancer
     Dosage: 1 DOSAGE FORM, Q3W, 3 WEEKS/4C3
     Dates: start: 20250630, end: 20250915
  2. PACLITAXEL [Suspect]
     Active Substance: PACLITAXEL
     Dosage: 1 DOSAGE FORM, Q3W, 3 WEEKS/4C3
     Route: 042
     Dates: start: 20250630, end: 20250915
  3. PACLITAXEL [Suspect]
     Active Substance: PACLITAXEL
     Dosage: 1 DOSAGE FORM, Q3W, 3 WEEKS/4C3
     Route: 042
     Dates: start: 20250630, end: 20250915
  4. PACLITAXEL [Suspect]
     Active Substance: PACLITAXEL
     Dosage: 1 DOSAGE FORM, Q3W, 3 WEEKS/4C3
     Dates: start: 20250630, end: 20250915
  5. CARBOPLATIN [Suspect]
     Active Substance: CARBOPLATIN
     Indication: Breast cancer
     Dosage: 1 DOSAGE FORM, Q3W, 3 WEEKS/4C3
     Dates: start: 20250630, end: 20250915
  6. CARBOPLATIN [Suspect]
     Active Substance: CARBOPLATIN
     Dosage: 1 DOSAGE FORM, Q3W, 3 WEEKS/4C3
     Route: 042
     Dates: start: 20250630, end: 20250915
  7. CARBOPLATIN [Suspect]
     Active Substance: CARBOPLATIN
     Dosage: 1 DOSAGE FORM, Q3W, 3 WEEKS/4C3
     Route: 042
     Dates: start: 20250630, end: 20250915
  8. CARBOPLATIN [Suspect]
     Active Substance: CARBOPLATIN
     Dosage: 1 DOSAGE FORM, Q3W, 3 WEEKS/4C3
     Dates: start: 20250630, end: 20250915
  9. APREPITANT [Suspect]
     Active Substance: APREPITANT
     Indication: Prophylaxis of nausea and vomiting
     Dosage: UNK
  10. APREPITANT [Suspect]
     Active Substance: APREPITANT
     Dosage: UNK
     Route: 048
  11. APREPITANT [Suspect]
     Active Substance: APREPITANT
     Dosage: UNK
     Route: 048
  12. APREPITANT [Suspect]
     Active Substance: APREPITANT
     Dosage: UNK
  13. KEYTRUDA [Suspect]
     Active Substance: PEMBROLIZUMAB
     Indication: Breast cancer
     Dosage: 1 DOSAGE FORM, Q28D, C2
     Dates: start: 20250630, end: 20250728
  14. KEYTRUDA [Suspect]
     Active Substance: PEMBROLIZUMAB
     Dosage: 1 DOSAGE FORM, Q28D, C2
     Route: 042
     Dates: start: 20250630, end: 20250728
  15. KEYTRUDA [Suspect]
     Active Substance: PEMBROLIZUMAB
     Dosage: 1 DOSAGE FORM, Q28D, C2
     Route: 042
     Dates: start: 20250630, end: 20250728
  16. KEYTRUDA [Suspect]
     Active Substance: PEMBROLIZUMAB
     Dosage: 1 DOSAGE FORM, Q28D, C2
     Dates: start: 20250630, end: 20250728
  17. LEVOTHYROXINE [Concomitant]
     Active Substance: LEVOTHYROXINE
     Dosage: 1 DOSAGE FORM, QD, SCORED TABLET
  18. LEVOTHYROXINE [Concomitant]
     Active Substance: LEVOTHYROXINE
     Dosage: 1 DOSAGE FORM, QD, SCORED TABLET
     Route: 048
  19. LEVOTHYROXINE [Concomitant]
     Active Substance: LEVOTHYROXINE
     Dosage: 1 DOSAGE FORM, QD, SCORED TABLET
     Route: 048
  20. LEVOTHYROXINE [Concomitant]
     Active Substance: LEVOTHYROXINE
     Dosage: 1 DOSAGE FORM, QD, SCORED TABLET
  21. IRBESARTAN [Concomitant]
     Active Substance: IRBESARTAN
     Dosage: 150 MILLIGRAM, QD
  22. IRBESARTAN [Concomitant]
     Active Substance: IRBESARTAN
     Dosage: 150 MILLIGRAM, QD
     Route: 048
  23. IRBESARTAN [Concomitant]
     Active Substance: IRBESARTAN
     Dosage: 150 MILLIGRAM, QD
     Route: 048
  24. IRBESARTAN [Concomitant]
     Active Substance: IRBESARTAN
     Dosage: 150 MILLIGRAM, QD
  25. OMEPRAZOLE [Concomitant]
     Active Substance: OMEPRAZOLE
     Dosage: UNK
  26. OMEPRAZOLE [Concomitant]
     Active Substance: OMEPRAZOLE
     Dosage: UNK
     Route: 048
  27. OMEPRAZOLE [Concomitant]
     Active Substance: OMEPRAZOLE
     Dosage: UNK
     Route: 048
  28. OMEPRAZOLE [Concomitant]
     Active Substance: OMEPRAZOLE
     Dosage: UNK
  29. VILDAGLIPTIN [Concomitant]
     Active Substance: VILDAGLIPTIN
     Dosage: 50 MILLIGRAM, QD
  30. VILDAGLIPTIN [Concomitant]
     Active Substance: VILDAGLIPTIN
     Dosage: 50 MILLIGRAM, QD
     Route: 048
  31. VILDAGLIPTIN [Concomitant]
     Active Substance: VILDAGLIPTIN
     Dosage: 50 MILLIGRAM, QD
     Route: 048
  32. VILDAGLIPTIN [Concomitant]
     Active Substance: VILDAGLIPTIN
     Dosage: 50 MILLIGRAM, QD

REACTIONS (1)
  - Subacute cutaneous lupus erythematosus [Recovering/Resolving]

NARRATIVE: CASE EVENT DATE: 20250715
